FAERS Safety Report 24288154 (Version 1)
Quarter: 2024Q3

REPORT INFORMATION
  Report Type: Report from Study
  Country: US (occurrence: US)
  Receive Date: 20240905
  Receipt Date: 20240905
  Transmission Date: 20241017
  Serious: Yes (Other)
  Sender: ABBVIE
  Company Number: US-ABBVIE-5901978

PATIENT
  Sex: Female

DRUGS (2)
  1. IMBRUVICA [Suspect]
     Active Substance: IBRUTINIB
     Indication: Polyneuropathy
     Route: 048
     Dates: end: 202407
  2. IMBRUVICA [Suspect]
     Active Substance: IBRUTINIB
     Indication: Polyneuropathy
     Route: 048

REACTIONS (1)
  - Surgery [Recovered/Resolved]
